FAERS Safety Report 6256928-3 (Version None)
Quarter: 2009Q3

REPORT INFORMATION
  Report Type: 
  Country: None (occurrence: None)
  Receive Date: 20090706
  Receipt Date: 20090701
  Transmission Date: 20100115
  Serious: Yes (Death, Other)
  Sender: FDA-Public Use
  Company Number: PHEH2009US06669

PATIENT
  Sex: Male

DRUGS (8)
  1. GLEEVEC [Suspect]
     Indication: CHRONIC MYELOID LEUKAEMIA
     Dosage: 400 MG, QD
     Route: 048
     Dates: start: 20090403
  2. GLEEVEC [Suspect]
     Indication: MALIGNANT MAST CELL NEOPLASM
     Dosage: UNK
     Route: 048
     Dates: end: 20090423
  3. CROMOLYN SODIUM [Concomitant]
     Indication: MALIGNANT MAST CELL NEOPLASM
     Dosage: 200 MG, 30MIN ACTHS
     Dates: start: 19890403, end: 20090423
  4. ZOLOFT [Concomitant]
     Indication: DEPRESSION
     Dosage: 100 MG, QD
     Route: 048
     Dates: start: 20090224, end: 20090423
  5. PREDNISONE [Concomitant]
     Indication: MALIGNANT MAST CELL NEOPLASM
     Dosage: 30 MG, BID
     Route: 048
     Dates: start: 20090217, end: 20090423
  6. ZOCOR [Concomitant]
     Indication: BLOOD CHOLESTEROL INCREASED
     Dosage: 20 MG, QHS
     Route: 048
     Dates: start: 20090203, end: 20090423
  7. COREG [Concomitant]
     Indication: HYPERTENSION
     Dosage: 25 MG, BID
     Route: 048
     Dates: start: 20080805, end: 20090423
  8. CLARITIN [Concomitant]
     Indication: SINUSITIS
     Dosage: 10 MG, QD
     Route: 048
     Dates: start: 20080805, end: 20090423

REACTIONS (2)
  - PULMONARY EMBOLISM [None]
  - SUDDEN CARDIAC DEATH [None]
